FAERS Safety Report 17592967 (Version 1)
Quarter: 2020Q1

REPORT INFORMATION
  Report Type: Spontaneous
  Country: PL (occurrence: PL)
  Receive Date: 20200327
  Receipt Date: 20200327
  Transmission Date: 20200409
  Serious: Yes (Life-Threatening, Hospitalization)
  Sender: FDA-Public Use
  Company Number: PL-BAUSCH-BL-2020-008445

PATIENT
  Age: 11 Year
  Sex: Male
  Weight: 3.6 kg

DRUGS (4)
  1. SODIUM BICARBONATE. [Concomitant]
     Active Substance: SODIUM BICARBONATE
     Indication: DIABETIC KETOACIDOSIS
     Dosage: 60 ML TRANSFUSED
     Route: 042
  2. DEXAMETHASONE. [Suspect]
     Active Substance: DEXAMETHASONE
     Indication: OEDEMA
     Dosage: 0.2 MG/KG OF BODY WEIGHT
     Route: 042
  3. MANNITOL. [Concomitant]
     Active Substance: MANNITOL
     Indication: OEDEMA
     Dosage: 0.35 MG/KG OF BODY WEIGHT
     Route: 042
  4. FUROSEMID [Concomitant]
     Active Substance: FUROSEMIDE
     Indication: OEDEMA
     Dosage: 0.7 MG/KG OF BODY WEIGHT
     Route: 042

REACTIONS (1)
  - Brain oedema [Recovering/Resolving]
